FAERS Safety Report 6672419-X (Version None)
Quarter: 2010Q2

REPORT INFORMATION
  Report Type: 
  Country: None (occurrence: None)
  Receive Date: 20100408
  Receipt Date: 20100330
  Transmission Date: 20101027
  Serious: Yes (Hospitalization, Other)
  Sender: FDA-Public Use
  Company Number: CA-ABBOTT-10P-028-0632973-00

PATIENT
  Sex: Male

DRUGS (1)
  1. HUMIRA [Suspect]
     Indication: CROHN'S DISEASE
     Dosage: AT WEEK 2
     Route: 058
     Dates: start: 20100223, end: 20100315

REACTIONS (4)
  - CROHN'S DISEASE [None]
  - DECREASED APPETITE [None]
  - PYREXIA [None]
  - TERMINAL STATE [None]
